FAERS Safety Report 14979800 (Version 2)
Quarter: 2018Q2

REPORT INFORMATION
  Report Type: Spontaneous
  Country: US (occurrence: US)
  Receive Date: 20180606
  Receipt Date: 20180625
  Transmission Date: 20180711
  Serious: No
  Sender: FDA-Public Use
  Company Number: US-009507513-1805USA014882

PATIENT
  Age: 13 Year
  Sex: Female
  Weight: 43.54 kg

DRUGS (5)
  1. ASMANEX [Suspect]
     Active Substance: MOMETASONE FUROATE
     Indication: ASTHMA
     Dosage: 1 CLICK INHALED, DAILY
     Route: 055
     Dates: start: 20171009, end: 20180131
  2. MIRALAX [Concomitant]
     Active Substance: POLYETHYLENE GLYCOL 3350
     Indication: CONSTIPATION
     Dosage: 17 G, DAILY
     Route: 048
     Dates: start: 20180405
  3. ASMANEX [Suspect]
     Active Substance: MOMETASONE FUROATE
     Dosage: 1 CLICK INHALED, DAILY
     Route: 055
     Dates: start: 20180518
  4. TUMS [Concomitant]
     Active Substance: CALCIUM CARBONATE
     Indication: GASTROOESOPHAGEAL REFLUX DISEASE
     Dosage: 1-2 TABLETS (4 TABLETS TOTAL DAILY DOSE)
     Route: 048
     Dates: start: 20180405
  5. ALBUTEROL. [Concomitant]
     Active Substance: ALBUTEROL
     Dosage: OCCASIONALLY

REACTIONS (5)
  - Abdominal pain upper [Not Recovered/Not Resolved]
  - Therapeutic response unexpected [Unknown]
  - Treatment noncompliance [Unknown]
  - Abdominal pain upper [Recovered/Resolved]
  - Product quality issue [Unknown]

NARRATIVE: CASE EVENT DATE: 201804
